FAERS Safety Report 14442247 (Version 1)
Quarter: 2018Q1

REPORT INFORMATION
  Report Type: Report from Study
  Country: US (occurrence: US)
  Receive Date: 20180125
  Receipt Date: 20180125
  Transmission Date: 20180509
  Serious: Yes (Disabling, Other)
  Sender: FDA-Public Use
  Company Number: US-SA-2018SA019920

PATIENT
  Age: 41 Year
  Sex: Female
  Weight: 79.38 kg

DRUGS (9)
  1. HUMIRA [Suspect]
     Active Substance: ADALIMUMAB
     Indication: RHEUMATOID ARTHRITIS
     Route: 058
     Dates: end: 2004
  2. HUMIRA [Suspect]
     Active Substance: ADALIMUMAB
     Indication: RHEUMATOID ARTHRITIS
     Route: 058
     Dates: start: 2015, end: 201602
  3. ORENCIA [Suspect]
     Active Substance: ABATACEPT
     Indication: RHEUMATOID ARTHRITIS
     Route: 065
  4. CALCIUM GLUCONATE. [Concomitant]
     Active Substance: CALCIUM GLUCONATE
  5. ARAVA [Suspect]
     Active Substance: LEFLUNOMIDE
     Indication: RHEUMATOID ARTHRITIS
     Route: 048
  6. ACTEMRA [Suspect]
     Active Substance: TOCILIZUMAB
     Indication: RHEUMATOID ARTHRITIS
     Route: 065
  7. VITAMIN D3 [Concomitant]
     Active Substance: CHOLECALCIFEROL
  8. BIOTIN [Concomitant]
     Active Substance: BIOTIN
  9. REMICADE [Suspect]
     Active Substance: INFLIXIMAB
     Indication: RHEUMATOID ARTHRITIS
     Route: 065

REACTIONS (11)
  - Liver disorder [Unknown]
  - Drug hypersensitivity [Unknown]
  - Peripheral swelling [Unknown]
  - Drug ineffective [Unknown]
  - Osteoarthritis [Unknown]
  - Rheumatoid nodule [Unknown]
  - Fatigue [Unknown]
  - Nasopharyngitis [Unknown]
  - Rheumatoid arthritis [Unknown]
  - Gastrooesophageal reflux disease [Unknown]
  - Swelling [Unknown]

NARRATIVE: CASE EVENT DATE: 2013
